FAERS Safety Report 7611247-5 (Version None)
Quarter: 2011Q3

REPORT INFORMATION
  Report Type: 
  Country: None (occurrence: None)
  Receive Date: 20110715
  Receipt Date: 20110630
  Transmission Date: 20111222
  Serious: Yes (Death, Hospitalization, Other)
  Sender: FDA-Public Use
  Company Number: HU-TYCO HEALTHCARE/MALLINCKRODT-T201101386

PATIENT
  Age: 40 Year
  Sex: Male

DRUGS (16)
  1. FENTANYL [Suspect]
     Dosage: 150 UG/HR, UNK
  2. MORPHINE [Suspect]
     Indication: CANCER PAIN
     Dosage: 20 MG, UNK
     Route: 058
  3. CISPLATIN [Suspect]
     Indication: CHEMOTHERAPY
  4. FENTANYL [Suspect]
     Indication: CANCER PAIN
     Dosage: 50 UG/HR, UNK
  5. FENTANYL [Suspect]
     Dosage: 200 UG/HR, UNK
  6. FENTANYL [Suspect]
     Dosage: 250 UG/HR, UNK
     Dates: end: 20101001
  7. MORPHINE SULFATE [Suspect]
     Dosage: 190 MG, IN 3 DAYS
     Route: 048
  8. MORPHINE SULFATE [Suspect]
     Dosage: 90 MG, IN 2 DAYS
     Route: 048
  9. GEMCITABINE [Suspect]
     Indication: CHEMOTHERAPY
     Dosage: UNK
  10. EXALGO [Suspect]
     Indication: CANCER PAIN
     Dosage: 32 MG, UNK
     Dates: start: 20100401, end: 20100601
  11. MORPHINE SULFATE [Suspect]
     Dosage: 190 MG, IN 2 DAYS
     Route: 048
  12. MORPHINE SULFATE [Suspect]
     Indication: CANCER PAIN
     Dosage: 130 MG, IN 3 DAYS
  13. FENTANYL [Suspect]
     Dosage: 125 UG/HR, UNK
     Dates: start: 20100601
  14. NSAID'S [Suspect]
     Indication: PAIN
     Dosage: UNK
  15. FENTANYL [Suspect]
     Dosage: 75 UG/HR, UNK
     Dates: end: 20100401
  16. AMITRIPTYLINE HCL [Suspect]
     Indication: PAIN

REACTIONS (13)
  - JAUNDICE [None]
  - DEATH [None]
  - ANAEMIA [None]
  - COMA [None]
  - HALLUCINATION [None]
  - URINARY RETENTION [None]
  - HYPOTENSION [None]
  - NEOPLASM PROGRESSION [None]
  - HEPATIC ENZYME INCREASED [None]
  - THERAPEUTIC RESPONSE DECREASED [None]
  - WEIGHT DECREASED [None]
  - DISORIENTATION [None]
  - CONVULSION [None]
